FAERS Safety Report 9735793 (Version 1)
Quarter: 2013Q4

REPORT INFORMATION
  Report Type: Spontaneous
  Country: US (occurrence: US)
  Receive Date: 20131206
  Receipt Date: 20131206
  Transmission Date: 20140711
  Serious: No
  Sender: FDA-Public Use
  Company Number: US-GILEAD-2009-0023134

PATIENT
  Age: 48 Year
  Sex: Male

DRUGS (13)
  1. LETAIRIS [Suspect]
     Indication: PULMONARY ARTERIAL HYPERTENSION
     Route: 048
     Dates: start: 20090625, end: 20090706
  2. LASIX [Concomitant]
  3. TOPROL XL [Concomitant]
  4. NORVASC [Concomitant]
  5. COUMADIN [Concomitant]
  6. SIMVASTATIN [Concomitant]
  7. POTASSIUM [Concomitant]
  8. PREDNISONE [Concomitant]
  9. KEPPRA [Concomitant]
  10. PLAQUENIL [Concomitant]
  11. ASPIRIN [Concomitant]
  12. ZONEGRAN [Concomitant]
  13. PROTONIX [Concomitant]

REACTIONS (1)
  - Oedema [Recovered/Resolved]
